FAERS Safety Report 12645856 (Version 1)
Quarter: 2016Q3

REPORT INFORMATION
  Report Type: Spontaneous
  Country: US (occurrence: US)
  Receive Date: 20160811
  Receipt Date: 20160811
  Transmission Date: 20161109
  Serious: No
  Sender: FDA-Public Use
  Company Number: US-ENDO PHARMACEUTICALS INC.-2016-003310

PATIENT
  Sex: Male
  Weight: 70.37 kg

DRUGS (1)
  1. PREDNISONE TABLETS [Suspect]
     Active Substance: PREDNISONE
     Indication: ABDOMINAL PAIN UPPER
     Dosage: TAPERED DOSE
     Route: 065
     Dates: start: 201605

REACTIONS (3)
  - Weight decreased [Not Recovered/Not Resolved]
  - Asthenia [Not Recovered/Not Resolved]
  - Hypoacusis [Not Recovered/Not Resolved]

NARRATIVE: CASE EVENT DATE: 2016
